FAERS Safety Report 11190622 (Version 1)
Quarter: 2015Q2

REPORT INFORMATION
  Report Type: Report from Study
  Country: DE (occurrence: DE)
  Receive Date: 20150615
  Receipt Date: 20150615
  Transmission Date: 20150821
  Serious: Yes (Hospitalization)
  Sender: FDA-Public Use
  Company Number: DE-INTERMUNE, INC.-201407IM006457

PATIENT
  Age: 73 Year
  Sex: Male
  Weight: 89 kg

DRUGS (27)
  1. XARELTO [Suspect]
     Active Substance: RIVAROXABAN
     Dates: start: 20140708, end: 20150216
  2. METOHEXAL [Concomitant]
     Active Substance: METOPROLOL SUCCINATE
     Indication: HYPERTENSION
     Dates: end: 20150216
  3. CALCILAK [Concomitant]
     Indication: VITAMIN SUPPLEMENTATION
     Dates: end: 20150216
  4. PREDNISOLON [Concomitant]
     Active Substance: PREDNISOLONE
     Dates: start: 20140621, end: 20140725
  5. ESBRIET [Suspect]
     Active Substance: PIRFENIDONE
     Dosage: 801 MG
     Route: 048
     Dates: start: 20140818
  6. ESBRIET [Suspect]
     Active Substance: PIRFENIDONE
     Dosage: 2403 MG
     Route: 048
     Dates: start: 20140901, end: 20150216
  7. PANTOZOL [Concomitant]
     Active Substance: PANTOPRAZOLE SODIUM
     Indication: PROPHYLAXIS
     Dates: end: 20150216
  8. ESBRIET [Suspect]
     Active Substance: PIRFENIDONE
     Dosage: 2403 MG
     Route: 048
     Dates: end: 20140714
  9. DELIX [Concomitant]
     Active Substance: RAMIPRIL
     Indication: HYPERTENSION
     Dates: end: 20150216
  10. ESBRIET [Suspect]
     Active Substance: PIRFENIDONE
     Indication: IDIOPATHIC PULMONARY FIBROSIS
     Route: 048
     Dates: start: 20140703
  11. ESBRIET [Suspect]
     Active Substance: PIRFENIDONE
     Dosage: 1602 MG
     Route: 048
     Dates: start: 20140825
  12. OXYGEN. [Concomitant]
     Active Substance: OXYGEN
     Indication: IDIOPATHIC PULMONARY FIBROSIS
     Dates: end: 20150216
  13. ACETYLSALICYLIC ACID [Suspect]
     Active Substance: ASPIRIN
     Indication: CORONARY ARTERY DISEASE
     Dates: end: 20150216
  14. PREDNISOLON [Concomitant]
     Active Substance: PREDNISOLONE
     Indication: IDIOPATHIC PULMONARY FIBROSIS
     Dates: end: 20140615
  15. FE SUBSTITUTION [Concomitant]
  16. ALDACTONE [Concomitant]
     Active Substance: SPIRONOLACTONE
     Indication: HYPERTENSION
     Dates: end: 20150216
  17. XARELTO [Suspect]
     Active Substance: RIVAROXABAN
     Indication: MICROEMBOLISM
     Dates: start: 20140617, end: 20140707
  18. METOHEXAL [Concomitant]
     Active Substance: METOPROLOL SUCCINATE
     Indication: CORONARY ARTERY DISEASE
  19. AMLODIPIN [Concomitant]
     Active Substance: AMLODIPINE BESYLATE
     Indication: HYPERTENSION
     Dates: end: 20150216
  20. SIMVAHEXAL [Concomitant]
     Active Substance: SIMVASTATIN
     Indication: HYPERLIPIDAEMIA
     Dates: end: 20150216
  21. METFORMIN [Concomitant]
     Active Substance: METFORMIN HYDROCHLORIDE
     Indication: TYPE 2 DIABETES MELLITUS
     Dates: end: 20150216
  22. BLOOD TRANSFUSION [Concomitant]
     Active Substance: WHOLE BLOOD
  23. TOREM [Concomitant]
     Active Substance: TORSEMIDE
     Indication: TRICUSPID VALVE INCOMPETENCE
     Dates: end: 20150216
  24. PREDNISOLON [Concomitant]
     Active Substance: PREDNISOLONE
     Dates: start: 20140626, end: 20140630
  25. PREDNISOLON [Concomitant]
     Active Substance: PREDNISOLONE
     Dates: start: 20140616, end: 20140620
  26. PREDNISOLON [Concomitant]
     Active Substance: PREDNISOLONE
     Dates: start: 20140701, end: 20140705
  27. FERRO SANOL DUODENAL [Concomitant]
     Active Substance: FERROUS SULFATE\GLYCINE
     Indication: ANAEMIA
     Dates: start: 20140804, end: 20150216

REACTIONS (1)
  - Iron deficiency anaemia [Recovered/Resolved]

NARRATIVE: CASE EVENT DATE: 20140714
